FAERS Safety Report 5491746-5 (Version None)
Quarter: 2007Q4

REPORT INFORMATION
  Report Type: 
  Country: None (occurrence: None)
  Receive Date: 20071022
  Receipt Date: 20071012
  Transmission Date: 20080405
  Serious: Yes (Other)
  Sender: FDA-Public Use
  Company Number: US-BRISTOL-MYERS SQUIBB COMPANY-13939780

PATIENT

DRUGS (1)
  1. ERBITUX [Suspect]

REACTIONS (1)
  - THROMBOCYTOPENIA [None]
